FAERS Safety Report 4774507-1 (Version None)
Quarter: 2005Q3

REPORT INFORMATION
  Report Type: 
  Country: None (occurrence: None)
  Receive Date: 20050913
  Receipt Date: 20050829
  Transmission Date: 20060218
  Serious: Yes (Death)
  Sender: FDA-Public Use
  Company Number: 2005BH001478

PATIENT
  Age: 3 Year
  Sex: Female

DRUGS (1)
  1. SODIUM CHLORIDE [Suspect]
     Dosage: 1000 ML; EVERY 2 WK;

REACTIONS (6)
  - GENERAL PHYSICAL HEALTH DETERIORATION [None]
  - PHARMACEUTICAL PRODUCT COMPLAINT [None]
  - POOR QUALITY DRUG ADMINISTERED [None]
  - SEPTIC SHOCK [None]
  - SERRATIA INFECTION [None]
  - TRANSFUSION REACTION [None]
